FAERS Safety Report 10197499 (Version 6)
Quarter: 2014Q4

REPORT INFORMATION
  Report Type: Report from Study
  Country: DE (occurrence: DE)
  Receive Date: 20140527
  Receipt Date: 20141111
  Transmission Date: 20150528
  Serious: Yes (Hospitalization)
  Sender: FDA-Public Use
  Company Number: DE-SA-2014SA063573

PATIENT
  Age: 54 Year
  Sex: Female

DRUGS (1)
  1. AUBAGIO [Suspect]
     Active Substance: TERIFLUNOMIDE
     Indication: MULTIPLE SCLEROSIS
     Route: 048
     Dates: start: 201311, end: 20141009

REACTIONS (12)
  - Nausea [Not Recovered/Not Resolved]
  - Influenza like illness [Recovered/Resolved]
  - Urinary tract infection [Not Recovered/Not Resolved]
  - Hospitalisation [Unknown]
  - Depressed mood [Unknown]
  - Contusion [Unknown]
  - Dizziness [Not Recovered/Not Resolved]
  - Seasonal allergy [Not Recovered/Not Resolved]
  - Oral herpes [Not Recovered/Not Resolved]
  - Dysstasia [Unknown]
  - Multiple sclerosis relapse [Unknown]
  - Alopecia [Not Recovered/Not Resolved]

NARRATIVE: CASE EVENT DATE: 200405
